FAERS Safety Report 15059316 (Version 8)
Quarter: 2019Q1

REPORT INFORMATION
  Report Type: Report from Study
  Country: CA (occurrence: CA)
  Receive Date: 20180625
  Receipt Date: 20190116
  Transmission Date: 20190417
  Serious: Yes (Hospitalization, Other)
  Sender: FDA-Public Use
  Company Number: CA-JNJFOC-20180628170

PATIENT
  Age: 54 Year
  Sex: Male

DRUGS (31)
  1. STELARA [Suspect]
     Active Substance: USTEKINUMAB
     Indication: PSORIASIS
     Route: 058
  2. STELARA [Suspect]
     Active Substance: USTEKINUMAB
     Indication: PSORIASIS
     Route: 058
  3. HYDROXYCHLOROQUINE [Concomitant]
     Active Substance: HYDROXYCHLOROQUINE
     Route: 065
  4. TYLENOL [Concomitant]
     Active Substance: ACETAMINOPHEN
     Route: 065
  5. BUPROPION. [Concomitant]
     Active Substance: BUPROPION
     Route: 065
  6. CETRIZINE [Concomitant]
     Active Substance: CETIRIZINE HYDROCHLORIDE
     Route: 065
  7. LORAZEPAM. [Concomitant]
     Active Substance: LORAZEPAM
     Route: 065
  8. WELLBUTRIN [Concomitant]
     Active Substance: BUPROPION HYDROCHLORIDE
     Route: 065
  9. AMLODIPINE [Concomitant]
     Active Substance: AMLODIPINE BESYLATE
     Route: 065
  10. FOLIC ACID. [Concomitant]
     Active Substance: FOLIC ACID
     Route: 065
  11. CETRIDINE [Concomitant]
     Route: 065
  12. SPIRIVA [Concomitant]
     Active Substance: TIOTROPIUM BROMIDE MONOHYDRATE
     Route: 065
  13. VENTOLIN [Concomitant]
     Active Substance: ALBUTEROL SULFATE
     Route: 065
  14. TRAZODONE [Concomitant]
     Active Substance: TRAZODONE HYDROCHLORIDE
     Route: 065
  15. SEPTRA [Concomitant]
     Active Substance: SULFAMETHOXAZOLE\TRIMETHOPRIM
     Route: 065
  16. ATIVAN [Concomitant]
     Active Substance: LORAZEPAM
     Route: 065
  17. OXYCODONE [Concomitant]
     Active Substance: OXYCODONE
     Route: 065
  18. ESCITALOPRAM [Concomitant]
     Active Substance: ESCITALOPRAM OXALATE
     Route: 065
  19. GABAPENTIN. [Concomitant]
     Active Substance: GABAPENTIN
     Route: 065
  20. PRAMIPEXOLE. [Concomitant]
     Active Substance: PRAMIPEXOLE
     Route: 065
  21. NABILONE [Concomitant]
     Active Substance: NABILONE
     Route: 065
  22. SALBUTAMOL [Concomitant]
     Active Substance: ALBUTEROL
     Route: 065
  23. FLUCONAZOLE. [Concomitant]
     Active Substance: FLUCONAZOLE
     Route: 065
  24. FLUTICASONE. [Concomitant]
     Active Substance: FLUTICASONE
     Route: 065
  25. ACETYLCYSTEINE. [Concomitant]
     Active Substance: ACETYLCYSTEINE
     Route: 065
  26. METHOTREXATE. [Concomitant]
     Active Substance: METHOTREXATE
     Route: 065
  27. CITALOPRAM [Concomitant]
     Active Substance: CITALOPRAM HYDROBROMIDE
     Route: 065
  28. FUROSEMIDE. [Concomitant]
     Active Substance: FUROSEMIDE
     Route: 065
  29. LASIX [Concomitant]
     Active Substance: FUROSEMIDE
     Route: 065
  30. TIOTROPIUM [Concomitant]
     Active Substance: TIOTROPIUM
     Route: 065
  31. OXYNEO [Concomitant]
     Active Substance: OXYCODONE
     Route: 065

REACTIONS (5)
  - Drug ineffective [Unknown]
  - Psoriasis [Not Recovered/Not Resolved]
  - Seizure [Not Recovered/Not Resolved]
  - Respiratory tract infection [Not Recovered/Not Resolved]
  - Tracheostomy [Unknown]

NARRATIVE: CASE EVENT DATE: 2018
